FAERS Safety Report 8629398 (Version 2)
Quarter: 2012Q4

REPORT INFORMATION
  Report Type: 
  Country: GB (occurrence: GB)
  Receive Date: 20120622
  Receipt Date: 20121004
  Transmission Date: 20130627
  Serious: Yes (Hospitalization)
  Sender: FDA-Public Use
  Company Number: GB-ACCORD-013733

PATIENT
  Age: 80 Year
  Sex: Male
  Weight: 70 kg

DRUGS (6)
  1. SIMVASTATIN [Suspect]
     Indication: HIGH CHOLESTEROL
     Route: 048
     Dates: start: 20120220, end: 20120513
  2. OMEPRAZOLE [Concomitant]
     Indication: ACID REFLUX (OESOPHAGEAL)
     Route: 048
     Dates: start: 20120220
  3. CILOSTAZOL [Concomitant]
     Indication: POOR PERIPHERAL CIRCULATION
     Dosage: Indication: Circulation
     Route: 048
     Dates: start: 20120510
  4. FUSIDIC ACID [Interacting]
     Indication: INFECTED TOE
     Route: 048
     Dates: start: 20120413, end: 20120513
  5. FLUCLOXACILLIN [Concomitant]
     Indication: INFECTED TOE
     Route: 048
     Dates: start: 20120413, end: 20120513
  6. NICORANDIL [Concomitant]
     Indication: ANGINA PECTORIS
     Route: 048
     Dates: start: 20120401

REACTIONS (2)
  - Drug interaction [Recovered/Resolved]
  - Rhabdomyolysis [Recovered/Resolved]
